FAERS Safety Report 6771851-3 (Version None)
Quarter: 2010Q2

REPORT INFORMATION
  Report Type: 
  Country: None (occurrence: None)
  Receive Date: 20100616
  Receipt Date: 20100604
  Transmission Date: 20101027
  Serious: Yes (Life-Threatening, Hospitalization, Other)
  Sender: FDA-Public Use
  Company Number: BR-JNJFOC-20100603833

PATIENT
  Age: 39 Year
  Sex: Male

DRUGS (12)
  1. TRAMADOL HYDROCHLORIDE [Suspect]
     Indication: ANAESTHESIA
     Route: 058
  2. MIDAZOLAM HCL [Suspect]
     Indication: ANAESTHESIA
     Route: 065
  3. REMIFENTANIL [Suspect]
     Indication: ANAESTHESIA
     Route: 065
  4. REMIFENTANIL [Suspect]
     Route: 065
  5. PROPOFOL [Suspect]
     Indication: ANAESTHESIA
     Route: 042
  6. ROCURONIUM [Suspect]
     Indication: ANAESTHESIA
     Route: 065
  7. RANITIDINE [Concomitant]
     Route: 065
  8. METOCLOPRAMIDE [Concomitant]
     Route: 065
  9. ATROPINE [Concomitant]
     Route: 065
  10. NEOSTIGMINE BROMIDE [Concomitant]
     Route: 065
  11. KETOPROFEN [Concomitant]
     Route: 065
  12. METAMIZOLE [Concomitant]
     Route: 065

REACTIONS (2)
  - MYOTONIA [None]
  - RESPIRATORY FAILURE [None]
